FAERS Safety Report 23136200 (Version 1)
Quarter: 2023Q4

REPORT INFORMATION
  Report Type: Report from Study
  Country: US (occurrence: US)
  Receive Date: 20231102
  Receipt Date: 20231102
  Transmission Date: 20240110
  Serious: No
  Sender: FDA-Public Use
  Company Number: US-ACADIA PHARMACEUTICALS INC.-ACA-2023-PIM-004603

PATIENT
  Age: 84 Year
  Sex: Male

DRUGS (22)
  1. NUPLAZID [Suspect]
     Active Substance: PIMAVANSERIN TARTRATE
     Indication: Parkinson^s disease
     Dosage: 34 MILLIGRAM, QD
     Route: 048
     Dates: start: 202302
  2. ELIQUIS [Concomitant]
     Active Substance: APIXABAN
     Dosage: UNK
  3. MINERALS\VITAMINS [Concomitant]
     Active Substance: MINERALS\VITAMINS
  4. OMEPRAZOLE [Concomitant]
     Active Substance: OMEPRAZOLE
  5. FUROSEMIDE [Concomitant]
     Active Substance: FUROSEMIDE
  6. CLONAZEPAM [Concomitant]
     Active Substance: CLONAZEPAM
  7. BISACODYL [Concomitant]
     Active Substance: BISACODYL
  8. LOSARTAN [Concomitant]
     Active Substance: LOSARTAN
  9. IPRATROPIUM [Concomitant]
     Active Substance: IPRATROPIUM
  10. OXYCODONE [Concomitant]
     Active Substance: OXYCODONE
  11. POTASSIUM [Concomitant]
     Active Substance: POTASSIUM
  12. METHOCARBAMOL [Concomitant]
     Active Substance: METHOCARBAMOL
  13. ROSUVASTATIN [Concomitant]
     Active Substance: ROSUVASTATIN
  14. LEVOTHYROXINE [Concomitant]
     Active Substance: LEVOTHYROXINE
  15. CARBIDOPA [Concomitant]
     Active Substance: CARBIDOPA
  16. MUCINEX [Concomitant]
     Active Substance: GUAIFENESIN
  17. COLACE [Concomitant]
     Active Substance: DOCUSATE SODIUM
  18. NARCAN [Concomitant]
     Active Substance: NALOXONE HYDROCHLORIDE
  19. DICLOFENAC [Concomitant]
     Active Substance: DICLOFENAC
  20. DULOXETINE [Concomitant]
     Active Substance: DULOXETINE
  21. FLOMAX [Concomitant]
     Active Substance: TAMSULOSIN HYDROCHLORIDE
  22. FLONASE [Concomitant]
     Active Substance: FLUTICASONE PROPIONATE

REACTIONS (1)
  - Left atrial appendage closure implant [Unknown]

NARRATIVE: CASE EVENT DATE: 20230928
